FAERS Safety Report 19396117 (Version 1)
Quarter: 2021Q2

REPORT INFORMATION
  Report Type: Report from Study
  Country: US (occurrence: US)
  Receive Date: 20210610
  Receipt Date: 20210610
  Transmission Date: 20210717
  Serious: Yes (Hospitalization)
  Sender: FDA-Public Use
  Company Number: US-BRISTOL-MYERS SQUIBB COMPANY-BMS-2021-054676

PATIENT
  Age: 78 Year
  Sex: Male
  Weight: 69.8 kg

DRUGS (6)
  1. NIVOLUMAB [Suspect]
     Active Substance: NIVOLUMAB
     Dosage: 235 MILLIGRAM
     Route: 065
     Dates: start: 20210318, end: 20210318
  2. CABOZANTINIB [Suspect]
     Active Substance: CABOZANTINIB
     Indication: NEUROENDOCRINE CARCINOMA
     Dosage: UNK
     Route: 065
     Dates: start: 20210128
  3. IPILIMUMAB [Suspect]
     Active Substance: IPILIMUMAB
     Indication: NEUROENDOCRINE CARCINOMA
     Dosage: UNK
     Route: 065
     Dates: start: 20210128
  4. CABOZANTINIB [Suspect]
     Active Substance: CABOZANTINIB
     Dosage: 0 MG
     Route: 065
     Dates: end: 20210311
  5. NIVOLUMAB [Suspect]
     Active Substance: NIVOLUMAB
     Indication: NEUROENDOCRINE CARCINOMA
     Dosage: UNK
     Route: 065
     Dates: start: 20210128
  6. IPILIMUMAB [Suspect]
     Active Substance: IPILIMUMAB
     Dosage: 78 MILLIGRAM
     Route: 065
     Dates: start: 20210318, end: 20210318

REACTIONS (1)
  - Fall [Recovering/Resolving]

NARRATIVE: CASE EVENT DATE: 20210411
